FAERS Safety Report 24018572 (Version 1)
Quarter: 2024Q2

REPORT INFORMATION
  Report Type: Spontaneous
  Country: US (occurrence: CA)
  Receive Date: 20240627
  Receipt Date: 20240627
  Transmission Date: 20240716
  Serious: Yes (Other)
  Sender: FDA-Public Use
  Company Number: US-BAYER-2024A089636

PATIENT
  Age: 63 Year
  Sex: Male

DRUGS (2)
  1. POLYETHYLENE GLYCOL 3350 [Suspect]
     Active Substance: POLYETHYLENE GLYCOL 3350
     Indication: Constipation
  2. LONSURF [Suspect]
     Active Substance: TIPIRACIL HYDROCHLORIDE\TRIFLURIDINE
     Indication: Colorectal cancer metastatic
     Dosage: 80 MG, BID ON DAYS 1 TO 5 AND 8 TO 12 OF A 28-DAY CYCLE
     Route: 048
     Dates: start: 20240422

REACTIONS (2)
  - Disease progression [None]
  - Diarrhoea [Unknown]

NARRATIVE: CASE EVENT DATE: 20240424
